FAERS Safety Report 17552594 (Version 1)
Quarter: 2020Q1

REPORT INFORMATION
  Report Type: Report from Study
  Country: CA (occurrence: CA)
  Receive Date: 20200317
  Receipt Date: 20200317
  Transmission Date: 20200409
  Serious: Yes (Other)
  Sender: FDA-Public Use
  Company Number: CA-JNJFOC-20190917103

PATIENT
  Age: 57 Year
  Sex: Female
  Weight: 57.3 kg

DRUGS (2)
  1. STELARA [Suspect]
     Active Substance: USTEKINUMAB
     Indication: CROHN^S DISEASE
     Route: 058
     Dates: start: 20181012
  2. STELARA [Suspect]
     Active Substance: USTEKINUMAB
     Route: 058
     Dates: start: 20181012

REACTIONS (5)
  - Nephrolithiasis [Recovered/Resolved]
  - Rash [Recovered/Resolved]
  - Dry eye [Recovering/Resolving]
  - Vision blurred [Recovering/Resolving]
  - Generalised oedema [Not Recovered/Not Resolved]

NARRATIVE: CASE EVENT DATE: 20181012
